FAERS Safety Report 7804247-3 (Version None)
Quarter: 2011Q4

REPORT INFORMATION
  Report Type: 
  Country: None (occurrence: None)
  Receive Date: 20111010
  Receipt Date: 20111003
  Transmission Date: 20120403
  Serious: Yes (Hospitalization)
  Sender: FDA-Public Use
  Company Number: PHEH2011US02143

PATIENT
  Sex: Female
  Weight: 90.703 kg

DRUGS (2)
  1. EXJADE [Suspect]
     Indication: MINERAL METABOLISM DISORDER
     Dosage: 2000 MG, DAILY
     Route: 048
     Dates: start: 20110209
  2. EXJADE [Suspect]
     Indication: IRON OVERLOAD

REACTIONS (2)
  - URINARY TRACT INFECTION [None]
  - INFECTION [None]
